FAERS Safety Report 4476505-4 (Version None)
Quarter: 2004Q4

REPORT INFORMATION
  Report Type: 
  Country: None (occurrence: None)
  Receive Date: 20041013
  Receipt Date: 20040928
  Transmission Date: 20050328
  Serious: Yes (Hospitalization)
  Sender: FDA-Public Use
  Company Number: US_0407104266

PATIENT
  Age: 37 Year
  Sex: Male

DRUGS (12)
  1. ZYPREXA [Suspect]
     Dosage: 30 MG/DAY
     Dates: start: 20020301
  2. COGENTIN [Concomitant]
  3. TRILEPTAL [Concomitant]
  4. EFFEXOR XR [Concomitant]
  5. ARICEPT [Concomitant]
  6. SEROQUEL [Concomitant]
  7. PROVIGIL [Concomitant]
  8. TRILAFON (PERPHENAZINE ENANTATE) [Concomitant]
  9. GLUCOPHAGE [Concomitant]
  10. DEPAKOTE [Concomitant]
  11. SYNTHROID [Concomitant]
  12. ZONEGRAN [Concomitant]

REACTIONS (6)
  - CEREBRAL ATROPHY [None]
  - DIABETES MELLITUS [None]
  - HUNTINGTON'S CHOREA [None]
  - PSYCHOTIC DISORDER [None]
  - TOOTH IMPACTED [None]
  - WEIGHT INCREASED [None]
